FAERS Safety Report 21004919 (Version 2)
Quarter: 2022Q3

REPORT INFORMATION
  Report Type: Spontaneous
  Country: JP (occurrence: JP)
  Receive Date: 20220624
  Receipt Date: 20220927
  Transmission Date: 20221026
  Serious: No
  Sender: FDA-Public Use
  Company Number: JP-AMERICAN REGENT INC-2022001745

PATIENT
  Age: 28 Year
  Sex: Female
  Weight: 61.3 kg

DRUGS (4)
  1. FERINJECT [Suspect]
     Active Substance: FERRIC CARBOXYMALTOSE
     Indication: Product used for unknown indication
     Dosage: 500 MILLIGRAM DILUTED IN 10 ML IN 100 ML OF 0.9 PERCENT SODIUM CHLORIDE (NACL)
     Dates: start: 20210904, end: 20210904
  2. FERINJECT [Suspect]
     Active Substance: FERRIC CARBOXYMALTOSE
     Dosage: 500 MILLIGRAM DILUTED IN 10 ML IN 100 ML OF 0.9 PERCENT SODIUM CHLORIDE (NACL)
     Dates: start: 20210913, end: 20210913
  3. FERINJECT [Suspect]
     Active Substance: FERRIC CARBOXYMALTOSE
     Dosage: 500 MILLIGRAM DILUTED IN 10 ML IN 100 ML OF 0.9 PERCENT SODIUM CHLORIDE (NACL)
     Dates: start: 20210921, end: 20210921
  4. FERINJECT [Suspect]
     Active Substance: FERRIC CARBOXYMALTOSE
     Dosage: 500 MILLIGRAM DILUTED IN 10 ML IN 100 ML OF 0.9 PERCENT SODIUM CHLORIDE (NACL)
     Dates: start: 20211004, end: 20211004

REACTIONS (3)
  - Serum ferritin increased [Recovering/Resolving]
  - Overdose [Unknown]
  - Exposure during pregnancy [Unknown]

NARRATIVE: CASE EVENT DATE: 20210904
